FAERS Safety Report 21873487 (Version 3)
Quarter: 2023Q1

REPORT INFORMATION
  Report Type: Report from Study
  Country: US (occurrence: US)
  Receive Date: 20230117
  Receipt Date: 20230224
  Transmission Date: 20230417
  Serious: Yes (Life-Threatening, Hospitalization, Other)
  Sender: FDA-Public Use
  Company Number: US-002147023-NVSC2023US005919

PATIENT
  Sex: Female

DRUGS (7)
  1. ENTRESTO [Suspect]
     Active Substance: SACUBITRIL\VALSARTAN
     Indication: Product used for unknown indication
     Dosage: 1 DOSAGE FORM, BID (49/51 MG)
     Route: 065
     Dates: start: 202112, end: 202211
  2. ENTRESTO [Suspect]
     Active Substance: SACUBITRIL\VALSARTAN
     Dosage: UNK (RESTARTED)
     Route: 065
     Dates: start: 20230120
  3. LISINOPRIL [Suspect]
     Active Substance: LISINOPRIL
     Indication: Product used for unknown indication
     Dosage: UNK
     Route: 065
     Dates: start: 202211, end: 202301
  4. COREG [Suspect]
     Active Substance: CARVEDILOL
     Indication: Product used for unknown indication
     Dosage: UNK
     Route: 065
  5. CLONIDINE [Concomitant]
     Active Substance: CLONIDINE
     Indication: Hypertension
     Dosage: UNK (1ST DOSE)
     Route: 065
     Dates: start: 202103
  6. CLONIDINE [Concomitant]
     Active Substance: CLONIDINE
     Dosage: UNK (2ND DOSE)
     Route: 065
  7. CLONIDINE [Concomitant]
     Active Substance: CLONIDINE
     Dosage: UNK (3RD DOSE)
     Route: 065

REACTIONS (14)
  - Dermatitis contact [Recovered/Resolved]
  - Asthma [Recovering/Resolving]
  - Dyspnoea [Recovered/Resolved]
  - Hypertension [Recovering/Resolving]
  - Cardiac flutter [Not Recovered/Not Resolved]
  - Chest pain [Not Recovered/Not Resolved]
  - Anxiety [Not Recovered/Not Resolved]
  - Mobility decreased [Not Recovered/Not Resolved]
  - Constipation [Not Recovered/Not Resolved]
  - Urine output decreased [Not Recovered/Not Resolved]
  - Muscular weakness [Unknown]
  - Swelling [Recovered/Resolved]
  - Disturbance in attention [Unknown]
  - Fatigue [Not Recovered/Not Resolved]

NARRATIVE: CASE EVENT DATE: 20220101
